FAERS Safety Report 5147704-3 (Version None)
Quarter: 2006Q3

REPORT INFORMATION
  Report Type: 
  Country: None (occurrence: None)
  Receive Date: 20060915
  Receipt Date: 20060727
  Transmission Date: 20061208
  Serious: No
  Sender: FDA-Public Use
  Company Number: 2006RL000275

PATIENT
  Age: 60 Year
  Sex: Male
  Weight: 90.7194 kg

DRUGS (4)
  1. OMACOR [Suspect]
     Indication: HIGH DENSITY LIPOPROTEIN
     Dosage: 4 GM;QD; PO
     Route: 048
     Dates: start: 20060101
  2. LIPITOR [Concomitant]
  3. AVAPRO [Concomitant]
  4. TOPROL-XL [Concomitant]

REACTIONS (2)
  - HYPOGEUSIA [None]
  - WEIGHT INCREASED [None]
